FAERS Safety Report 4798099-6 (Version None)
Quarter: 2005Q4

REPORT INFORMATION
  Report Type: 
  Country: None (occurrence: None)
  Receive Date: 20051012
  Receipt Date: 20051012
  Transmission Date: 20060501
  Serious: Yes (Hospitalization)
  Sender: FDA-Public Use
  Company Number: None

PATIENT
  Sex: Female
  Weight: 99.3377 kg

DRUGS (14)
  1. COZAAR [Suspect]
     Indication: HYPERTENSION
     Dosage: 50 MG PO BID [PRIOR TO ADMISSION]
     Route: 048
  2. LASIX [Suspect]
     Indication: HYPERTENSION
     Dosage: 40 MG IV BID [PRIOR TO ADMISSION]
     Route: 042
  3. NORVASC [Concomitant]
  4. COREG [Concomitant]
  5. PLAVIX [Concomitant]
  6. CARDURA [Concomitant]
  7. PEPCID [Concomitant]
  8. ALDACTONE [Concomitant]
  9. ASPIRIN [Concomitant]
  10. HYDRALAZINE [Concomitant]
  11. INSULIN [Concomitant]
  12. IMDUR [Concomitant]
  13. K-DUR 10 [Concomitant]
  14. LIPITOR [Concomitant]

REACTIONS (2)
  - BLOOD POTASSIUM INCREASED [None]
  - RENAL FAILURE [None]
